FAERS Safety Report 16249393 (Version 2)
Quarter: 2019Q2

REPORT INFORMATION
  Report Type: Spontaneous
  Country: US (occurrence: US)
  Receive Date: 20190429
  Receipt Date: 20190516
  Transmission Date: 20190711
  Serious: No
  Sender: FDA-Public Use
  Company Number: US-LEO PHARMA-318223

PATIENT
  Age: 57 Year
  Sex: Female

DRUGS (5)
  1. DAIVOBET [Suspect]
     Active Substance: BETAMETHASONE DIPROPIONATE\CALCIPOTRIENE
     Indication: SWELLING
  2. DAIVOBET [Suspect]
     Active Substance: BETAMETHASONE DIPROPIONATE\CALCIPOTRIENE
     Indication: SKIN EXFOLIATION
  3. DAIVOBET [Suspect]
     Active Substance: BETAMETHASONE DIPROPIONATE\CALCIPOTRIENE
     Indication: PAIN OF SKIN
     Route: 061
  4. DAIVOBET [Suspect]
     Active Substance: BETAMETHASONE DIPROPIONATE\CALCIPOTRIENE
     Indication: HAIR GROWTH ABNORMAL
  5. MULTIVITAMIN [Concomitant]
     Active Substance: VITAMINS
     Indication: PRODUCT USED FOR UNKNOWN INDICATION

REACTIONS (2)
  - Headache [Not Recovered/Not Resolved]
  - Product use in unapproved indication [Unknown]
